FAERS Safety Report 5272098-2 (Version None)
Quarter: 2007Q1

REPORT INFORMATION
  Report Type: 
  Country: None (occurrence: None)
  Receive Date: 20070320
  Receipt Date: 20070320
  Transmission Date: 20070707
  Serious: Yes (Life-Threatening)
  Sender: FDA-Public Use
  Company Number: None

PATIENT
  Age: 14 Year
  Sex: Male
  Weight: 74.8435 kg

DRUGS (1)
  1. TAMIFLU [Suspect]
     Indication: INFLUENZA LIKE ILLNESS
     Dosage: ONE TSPN TWICE DAILY PO
     Route: 048
     Dates: start: 20070315, end: 20070320

REACTIONS (6)
  - ABNORMAL BEHAVIOUR [None]
  - DELIRIUM [None]
  - FEAR [None]
  - HALLUCINATION [None]
  - HALLUCINATION, AUDITORY [None]
  - NIGHTMARE [None]
